FAERS Safety Report 7901695-8 (Version None)
Quarter: 2011Q4

REPORT INFORMATION
  Report Type: 
  Country: None (occurrence: None)
  Receive Date: 20111108
  Receipt Date: 20111030
  Transmission Date: 20120403
  Serious: Yes (Death, Hospitalization)
  Sender: FDA-Public Use
  Company Number: NZ-B.I. PHARMACEUTICALS,INC./RIDGEFIELD-2011-AU-00465AU

PATIENT
  Sex: Male
  Weight: 50 kg

DRUGS (6)
  1. DIGOXIN [Concomitant]
     Dosage: 62.5 MCG
     Route: 048
  2. PRADAXA [Suspect]
     Dosage: 220 MG
     Route: 048
     Dates: start: 20110707, end: 20110711
  3. WARFARIN SODIUM [Suspect]
     Indication: HEART RATE IRREGULAR
     Dosage: 2.5 MG
     Route: 048
     Dates: end: 20110707
  4. AMOXICILLIN [Concomitant]
     Dosage: 1.5 G
     Route: 048
  5. ATORVASTATIN [Concomitant]
     Dosage: 40 MG
     Route: 048
  6. NUTRITIONAL SUPPLEMENTS [Concomitant]

REACTIONS (9)
  - LUNG INFILTRATION [None]
  - CHEST PAIN [None]
  - MELAENA [None]
  - DEATH [None]
  - MEDICATION ERROR [None]
  - PNEUMONIA [None]
  - PULMONARY HAEMORRHAGE [None]
  - RECTAL HAEMORRHAGE [None]
  - DYSPNOEA [None]
